FAERS Safety Report 23481382 (Version 4)
Quarter: 2025Q3

REPORT INFORMATION
  Report Type: Spontaneous
  Country: GB (occurrence: GB)
  Receive Date: 20240205
  Receipt Date: 20250908
  Transmission Date: 20251021
  Serious: Yes (Hospitalization, Other)
  Sender: MYLAN
  Company Number: GB-SUN PHARMACEUTICAL INDUSTRIES LTD-2024RR-427268

PATIENT
  Age: 59 Year
  Sex: Female

DRUGS (120)
  1. LOPERAMIDE [Suspect]
     Active Substance: LOPERAMIDE
     Indication: Prophylaxis
     Dosage: 4 MILLIGRAM, BID (CYCLE 1, DAY 1)
     Route: 048
     Dates: start: 20231229
  2. LOPERAMIDE [Suspect]
     Active Substance: LOPERAMIDE
     Indication: Gastrooesophageal reflux disease
     Dosage: 4 MILLIGRAM, BID (CYCLE 1, DAY 1)
     Dates: start: 20231229
  3. LOPERAMIDE [Suspect]
     Active Substance: LOPERAMIDE
     Indication: Oesophageal adenocarcinoma
     Dosage: 4 MILLIGRAM, BID (CYCLE 1, DAY 1)
     Dates: start: 20231229
  4. LOPERAMIDE [Suspect]
     Active Substance: LOPERAMIDE
     Dosage: 4 MILLIGRAM, BID (CYCLE 1, DAY 1)
     Route: 048
     Dates: start: 20231229
  5. LOPERAMIDE [Suspect]
     Active Substance: LOPERAMIDE
     Route: 048
  6. LOPERAMIDE [Suspect]
     Active Substance: LOPERAMIDE
  7. LOPERAMIDE [Suspect]
     Active Substance: LOPERAMIDE
  8. LOPERAMIDE [Suspect]
     Active Substance: LOPERAMIDE
     Route: 048
  9. CAPECITABINE [Suspect]
     Active Substance: CAPECITABINE
     Indication: Oesophageal adenocarcinoma
     Route: 065
  10. CAPECITABINE [Suspect]
     Active Substance: CAPECITABINE
     Indication: Prophylaxis
  11. CAPECITABINE [Suspect]
     Active Substance: CAPECITABINE
     Indication: Gastrooesophageal reflux disease
  12. CAPECITABINE [Suspect]
     Active Substance: CAPECITABINE
     Route: 065
  13. CAPECITABINE [Suspect]
     Active Substance: CAPECITABINE
     Route: 065
  14. CAPECITABINE [Suspect]
     Active Substance: CAPECITABINE
  15. CAPECITABINE [Suspect]
     Active Substance: CAPECITABINE
  16. CAPECITABINE [Suspect]
     Active Substance: CAPECITABINE
     Route: 065
  17. OXALIPLATIN [Suspect]
     Active Substance: OXALIPLATIN
     Indication: Oesophageal adenocarcinoma
  18. OXALIPLATIN [Suspect]
     Active Substance: OXALIPLATIN
     Indication: Gastrooesophageal reflux disease
  19. OXALIPLATIN [Suspect]
     Active Substance: OXALIPLATIN
     Indication: Prophylaxis
     Route: 065
  20. OXALIPLATIN [Suspect]
     Active Substance: OXALIPLATIN
     Route: 065
  21. OXALIPLATIN [Suspect]
     Active Substance: OXALIPLATIN
     Dosage: 225 MILLIGRAM/SQ. METER, Q3W(CYCLE 1, DAY 1, SOLUTION FOR INJECTION)
     Route: 042
     Dates: start: 20231229, end: 20231229
  22. OXALIPLATIN [Suspect]
     Active Substance: OXALIPLATIN
     Dosage: 225 MILLIGRAM/SQ. METER, Q3W(CYCLE 1, DAY 1, SOLUTION FOR INJECTION)
     Route: 042
     Dates: start: 20231229, end: 20231229
  23. OXALIPLATIN [Suspect]
     Active Substance: OXALIPLATIN
     Dosage: 225 MILLIGRAM/SQ. METER, Q3W(CYCLE 1, DAY 1, SOLUTION FOR INJECTION)
     Dates: start: 20231229, end: 20231229
  24. OXALIPLATIN [Suspect]
     Active Substance: OXALIPLATIN
     Dosage: 225 MILLIGRAM/SQ. METER, Q3W(CYCLE 1, DAY 1, SOLUTION FOR INJECTION)
     Dates: start: 20231229, end: 20231229
  25. OXALIPLATIN [Suspect]
     Active Substance: OXALIPLATIN
     Dosage: 202.5 MILLIGRAM/SQ. METER, Q3W (SOLUTION FOR INJECTION)
     Route: 042
     Dates: start: 20231229, end: 20231229
  26. OXALIPLATIN [Suspect]
     Active Substance: OXALIPLATIN
     Dosage: 202.5 MILLIGRAM/SQ. METER, Q3W (SOLUTION FOR INJECTION)
     Route: 042
     Dates: start: 20231229, end: 20231229
  27. OXALIPLATIN [Suspect]
     Active Substance: OXALIPLATIN
     Dosage: 202.5 MILLIGRAM/SQ. METER, Q3W (SOLUTION FOR INJECTION)
     Dates: start: 20231229, end: 20231229
  28. OXALIPLATIN [Suspect]
     Active Substance: OXALIPLATIN
     Dosage: 202.5 MILLIGRAM/SQ. METER, Q3W (SOLUTION FOR INJECTION)
     Dates: start: 20231229, end: 20231229
  29. OXALIPLATIN [Suspect]
     Active Substance: OXALIPLATIN
  30. OXALIPLATIN [Suspect]
     Active Substance: OXALIPLATIN
  31. OXALIPLATIN [Suspect]
     Active Substance: OXALIPLATIN
     Route: 042
  32. OXALIPLATIN [Suspect]
     Active Substance: OXALIPLATIN
     Route: 042
  33. TEVIMBRA [Suspect]
     Active Substance: TISLELIZUMAB-JSGR
     Indication: Oesophageal adenocarcinoma
     Dosage: 200 MILLIGRAM, Q3W (CYCLE1, DAY1)
     Route: 042
     Dates: start: 20231229, end: 20231229
  34. TEVIMBRA [Suspect]
     Active Substance: TISLELIZUMAB-JSGR
     Indication: Gastrooesophageal reflux disease
     Dosage: 200 MILLIGRAM, Q3W (CYCLE1, DAY1)
     Dates: start: 20231229, end: 20231229
  35. TEVIMBRA [Suspect]
     Active Substance: TISLELIZUMAB-JSGR
     Indication: Prophylaxis
     Dosage: 200 MILLIGRAM, Q3W (CYCLE1, DAY1)
     Dates: start: 20231229, end: 20231229
  36. TEVIMBRA [Suspect]
     Active Substance: TISLELIZUMAB-JSGR
     Dosage: 200 MILLIGRAM, Q3W (CYCLE1, DAY1)
     Route: 042
     Dates: start: 20231229, end: 20231229
  37. TEVIMBRA [Suspect]
     Active Substance: TISLELIZUMAB-JSGR
     Route: 042
  38. TEVIMBRA [Suspect]
     Active Substance: TISLELIZUMAB-JSGR
  39. TEVIMBRA [Suspect]
     Active Substance: TISLELIZUMAB-JSGR
  40. TEVIMBRA [Suspect]
     Active Substance: TISLELIZUMAB-JSGR
     Route: 042
  41. ZANIDATAMAB [Suspect]
     Active Substance: ZANIDATAMAB
     Indication: Oesophageal adenocarcinoma
     Dosage: 1800 MILLIGRAM, Q3W (CYCLE1, DAY1)
     Route: 042
     Dates: start: 20231229, end: 20231229
  42. ZANIDATAMAB [Suspect]
     Active Substance: ZANIDATAMAB
     Indication: Gastrooesophageal reflux disease
     Dosage: 1800 MILLIGRAM, Q3W (CYCLE1, DAY1)
     Dates: start: 20231229, end: 20231229
  43. ZANIDATAMAB [Suspect]
     Active Substance: ZANIDATAMAB
     Indication: Prophylaxis
     Dosage: 1800 MILLIGRAM, Q3W (CYCLE1, DAY1)
     Dates: start: 20231229, end: 20231229
  44. ZANIDATAMAB [Suspect]
     Active Substance: ZANIDATAMAB
     Dosage: 1800 MILLIGRAM, Q3W (CYCLE1, DAY1)
     Route: 042
     Dates: start: 20231229, end: 20231229
  45. ZANIDATAMAB [Suspect]
     Active Substance: ZANIDATAMAB
     Route: 042
  46. ZANIDATAMAB [Suspect]
     Active Substance: ZANIDATAMAB
  47. ZANIDATAMAB [Suspect]
     Active Substance: ZANIDATAMAB
  48. ZANIDATAMAB [Suspect]
     Active Substance: ZANIDATAMAB
     Route: 042
  49. AMINOPHYLLINE [Concomitant]
     Active Substance: AMINOPHYLLINE
     Indication: Product used for unknown indication
  50. AMINOPHYLLINE [Concomitant]
     Active Substance: AMINOPHYLLINE
     Route: 065
  51. AMINOPHYLLINE [Concomitant]
     Active Substance: AMINOPHYLLINE
     Route: 065
  52. AMINOPHYLLINE [Concomitant]
     Active Substance: AMINOPHYLLINE
  53. CELECOXIB [Concomitant]
     Active Substance: CELECOXIB
     Indication: Product used for unknown indication
  54. CELECOXIB [Concomitant]
     Active Substance: CELECOXIB
     Route: 065
  55. CELECOXIB [Concomitant]
     Active Substance: CELECOXIB
     Route: 065
  56. CELECOXIB [Concomitant]
     Active Substance: CELECOXIB
  57. DEXAMETHASONE [Concomitant]
     Active Substance: DEXAMETHASONE
     Indication: Product used for unknown indication
     Dates: start: 20231109, end: 20231215
  58. DEXAMETHASONE [Concomitant]
     Active Substance: DEXAMETHASONE
     Route: 065
     Dates: start: 20231109, end: 20231215
  59. DEXAMETHASONE [Concomitant]
     Active Substance: DEXAMETHASONE
     Route: 065
     Dates: start: 20231109, end: 20231215
  60. DEXAMETHASONE [Concomitant]
     Active Substance: DEXAMETHASONE
     Dates: start: 20231109, end: 20231215
  61. DOCUSATE SODIUM [Concomitant]
     Active Substance: DOCUSATE SODIUM
     Indication: Product used for unknown indication
  62. DOCUSATE SODIUM [Concomitant]
     Active Substance: DOCUSATE SODIUM
     Route: 065
  63. DOCUSATE SODIUM [Concomitant]
     Active Substance: DOCUSATE SODIUM
     Route: 065
  64. DOCUSATE SODIUM [Concomitant]
     Active Substance: DOCUSATE SODIUM
  65. GAVISCON [Concomitant]
     Active Substance: ALUMINUM HYDROXIDE\MAGNESIUM CARBONATE
     Indication: Product used for unknown indication
  66. GAVISCON [Concomitant]
     Active Substance: ALUMINUM HYDROXIDE\MAGNESIUM CARBONATE
     Route: 065
  67. GAVISCON [Concomitant]
     Active Substance: ALUMINUM HYDROXIDE\MAGNESIUM CARBONATE
     Route: 065
  68. GAVISCON [Concomitant]
     Active Substance: ALUMINUM HYDROXIDE\MAGNESIUM CARBONATE
  69. POLYETHYLENE GLYCOL 3350\POTASSIUM CHLORIDE\SODIUM BICARBONATE\SODIUM [Concomitant]
     Active Substance: POLYETHYLENE GLYCOL 3350\POTASSIUM CHLORIDE\SODIUM BICARBONATE\SODIUM CHLORIDE
     Indication: Product used for unknown indication
  70. POLYETHYLENE GLYCOL 3350\POTASSIUM CHLORIDE\SODIUM BICARBONATE\SODIUM [Concomitant]
     Active Substance: POLYETHYLENE GLYCOL 3350\POTASSIUM CHLORIDE\SODIUM BICARBONATE\SODIUM CHLORIDE
     Route: 065
  71. POLYETHYLENE GLYCOL 3350\POTASSIUM CHLORIDE\SODIUM BICARBONATE\SODIUM [Concomitant]
     Active Substance: POLYETHYLENE GLYCOL 3350\POTASSIUM CHLORIDE\SODIUM BICARBONATE\SODIUM CHLORIDE
     Route: 065
  72. POLYETHYLENE GLYCOL 3350\POTASSIUM CHLORIDE\SODIUM BICARBONATE\SODIUM [Concomitant]
     Active Substance: POLYETHYLENE GLYCOL 3350\POTASSIUM CHLORIDE\SODIUM BICARBONATE\SODIUM CHLORIDE
  73. Mediderm [Concomitant]
     Indication: Product used for unknown indication
  74. Mediderm [Concomitant]
     Route: 065
  75. Mediderm [Concomitant]
     Route: 065
  76. Mediderm [Concomitant]
  77. OMEPRAZOLE [Concomitant]
     Active Substance: OMEPRAZOLE
     Indication: Gastrooesophageal reflux disease
  78. OMEPRAZOLE [Concomitant]
     Active Substance: OMEPRAZOLE
     Route: 065
  79. OMEPRAZOLE [Concomitant]
     Active Substance: OMEPRAZOLE
     Route: 065
  80. OMEPRAZOLE [Concomitant]
     Active Substance: OMEPRAZOLE
  81. ACETAMINOPHEN [Concomitant]
     Active Substance: ACETAMINOPHEN
     Indication: Product used for unknown indication
  82. ACETAMINOPHEN [Concomitant]
     Active Substance: ACETAMINOPHEN
     Route: 065
  83. ACETAMINOPHEN [Concomitant]
     Active Substance: ACETAMINOPHEN
     Route: 065
  84. ACETAMINOPHEN [Concomitant]
     Active Substance: ACETAMINOPHEN
  85. PREGABALIN [Concomitant]
     Active Substance: PREGABALIN
     Indication: Product used for unknown indication
  86. PREGABALIN [Concomitant]
     Active Substance: PREGABALIN
     Route: 065
  87. PREGABALIN [Concomitant]
     Active Substance: PREGABALIN
     Route: 065
  88. PREGABALIN [Concomitant]
     Active Substance: PREGABALIN
  89. VITAMIN B12 [Concomitant]
     Active Substance: CYANOCOBALAMIN
     Indication: Product used for unknown indication
  90. VITAMIN B12 [Concomitant]
     Active Substance: CYANOCOBALAMIN
     Route: 065
  91. VITAMIN B12 [Concomitant]
     Active Substance: CYANOCOBALAMIN
     Route: 065
  92. VITAMIN B12 [Concomitant]
     Active Substance: CYANOCOBALAMIN
  93. MORPHINE SULFATE [Concomitant]
     Active Substance: MORPHINE SULFATE
     Indication: Product used for unknown indication
  94. MORPHINE SULFATE [Concomitant]
     Active Substance: MORPHINE SULFATE
     Route: 065
  95. MORPHINE SULFATE [Concomitant]
     Active Substance: MORPHINE SULFATE
     Route: 065
  96. MORPHINE SULFATE [Concomitant]
     Active Substance: MORPHINE SULFATE
  97. MORPHINE SULFATE [Concomitant]
     Active Substance: MORPHINE SULFATE
  98. MORPHINE SULFATE [Concomitant]
     Active Substance: MORPHINE SULFATE
     Route: 065
  99. MORPHINE SULFATE [Concomitant]
     Active Substance: MORPHINE SULFATE
     Route: 065
  100. MORPHINE SULFATE [Concomitant]
     Active Substance: MORPHINE SULFATE
  101. ACETAMINOPHEN [Concomitant]
     Active Substance: ACETAMINOPHEN
  102. ACETAMINOPHEN [Concomitant]
     Active Substance: ACETAMINOPHEN
     Route: 065
  103. ACETAMINOPHEN [Concomitant]
     Active Substance: ACETAMINOPHEN
     Route: 065
  104. ACETAMINOPHEN [Concomitant]
     Active Substance: ACETAMINOPHEN
  105. POLYETHYLENE GLYCOL 3350 [Concomitant]
     Active Substance: POLYETHYLENE GLYCOL 3350
  106. POLYETHYLENE GLYCOL 3350 [Concomitant]
     Active Substance: POLYETHYLENE GLYCOL 3350
     Route: 065
  107. POLYETHYLENE GLYCOL 3350 [Concomitant]
     Active Substance: POLYETHYLENE GLYCOL 3350
     Route: 065
  108. POLYETHYLENE GLYCOL 3350 [Concomitant]
     Active Substance: POLYETHYLENE GLYCOL 3350
  109. POTASSIUM CHLORIDE [Concomitant]
     Active Substance: POTASSIUM CHLORIDE
  110. POTASSIUM CHLORIDE [Concomitant]
     Active Substance: POTASSIUM CHLORIDE
     Route: 065
  111. POTASSIUM CHLORIDE [Concomitant]
     Active Substance: POTASSIUM CHLORIDE
     Route: 065
  112. POTASSIUM CHLORIDE [Concomitant]
     Active Substance: POTASSIUM CHLORIDE
  113. SODIUM BICARBONATE [Concomitant]
     Active Substance: SODIUM BICARBONATE
  114. SODIUM BICARBONATE [Concomitant]
     Active Substance: SODIUM BICARBONATE
     Route: 065
  115. SODIUM BICARBONATE [Concomitant]
     Active Substance: SODIUM BICARBONATE
     Route: 065
  116. SODIUM BICARBONATE [Concomitant]
     Active Substance: SODIUM BICARBONATE
  117. SODIUM CHLORIDE [Concomitant]
     Active Substance: SODIUM CHLORIDE
  118. SODIUM CHLORIDE [Concomitant]
     Active Substance: SODIUM CHLORIDE
     Route: 065
  119. SODIUM CHLORIDE [Concomitant]
     Active Substance: SODIUM CHLORIDE
     Route: 065
  120. SODIUM CHLORIDE [Concomitant]
     Active Substance: SODIUM CHLORIDE

REACTIONS (2)
  - Infusion related reaction [Unknown]
  - Pneumonia [Unknown]
